FAERS Safety Report 10812151 (Version 1)
Quarter: 2015Q1

REPORT INFORMATION
  Report Type: Spontaneous
  Country: US (occurrence: None)
  Receive Date: 20150212
  Receipt Date: 20150212
  Transmission Date: 20150721
  Serious: No
  Sender: FDA-Public Use
  Company Number: None

PATIENT
  Age: 64 Year
  Sex: Female
  Weight: 73.48 kg

DRUGS (7)
  1. CENTRUM SILVER [Concomitant]
     Active Substance: VITAMINS
  2. BAYER 81 [Concomitant]
  3. VITAMIN D [Concomitant]
     Active Substance: CHOLECALCIFEROL
  4. FOSAMAX [Suspect]
     Active Substance: ALENDRONATE SODIUM
     Indication: OSTEOPOROSIS
     Dosage: 1
     Route: 048
     Dates: start: 20150206
  5. FOLIC ACID. [Concomitant]
     Active Substance: FOLIC ACID
  6. TYLENOLPM [Concomitant]
  7. IBUPROFEN (ASPIRIN) [Concomitant]

REACTIONS (6)
  - Musculoskeletal pain [None]
  - Impaired work ability [None]
  - Back pain [None]
  - Arthralgia [None]
  - Activities of daily living impaired [None]
  - Pain in extremity [None]

NARRATIVE: CASE EVENT DATE: 20150206
